FAERS Safety Report 9230074 (Version 1)
Quarter: 2013Q2

REPORT INFORMATION
  Report Type: Spontaneous
  Country: US (occurrence: None)
  Receive Date: 20130412
  Receipt Date: 20130412
  Transmission Date: 20140414
  Serious: Yes (Life-Threatening)
  Sender: FDA-Public Use
  Company Number: None

PATIENT
  Age: 67 Year
  Sex: Male
  Weight: 62.14 kg

DRUGS (1)
  1. FLUROURACIL [Suspect]
     Indication: PANCREATIC CARCINOMA
     Route: 042
     Dates: start: 20130402, end: 20130403

REACTIONS (1)
  - Electrocardiogram ST segment elevation [None]
